FAERS Safety Report 4750055-X (Version None)
Quarter: 2005Q3

REPORT INFORMATION
  Report Type: 
  Country: None (occurrence: None)
  Receive Date: 20050822
  Receipt Date: 20050804
  Transmission Date: 20060218
  Serious: Yes (Other)
  Sender: FDA-Public Use
  Company Number: 2005S1007335

PATIENT
  Age: 75 Year
  Sex: Male

DRUGS (1)
  1. APOMORPHINE HYDROCHLORIDE (APOMORPHINE HYDROCHLORIDE) [Suspect]
     Indication: PARKINSON'S DISEASE
     Dosage: 5 MG/HR; Q12H; SC
     Route: 058
     Dates: start: 20050316, end: 20050420

REACTIONS (2)
  - AGGRESSION [None]
  - LIBIDO INCREASED [None]
